FAERS Safety Report 6185768-9 (Version None)
Quarter: 2009Q2

REPORT INFORMATION
  Report Type: 
  Country: None (occurrence: None)
  Receive Date: 20090511
  Receipt Date: 20090430
  Transmission Date: 20091009
  Serious: Yes (Hospitalization, Disabling, Other)
  Sender: FDA-Public Use
  Company Number: US-BIOGENIDEC-2009BI013640

PATIENT
  Age: 62 Year
  Sex: Female
  Weight: 73 kg

DRUGS (11)
  1. TYSABRI [Suspect]
     Indication: MULTIPLE SCLEROSIS
     Route: 042
     Dates: start: 20080801
  2. PROZAC [Concomitant]
     Route: 048
  3. NEURONTIN [Concomitant]
     Route: 048
  4. TEMAZEPAM [Concomitant]
     Route: 048
  5. RITALIN [Concomitant]
     Route: 048
  6. MESTINON [Concomitant]
     Route: 048
  7. BACLOFEN [Concomitant]
     Route: 048
  8. LYRICA [Concomitant]
     Route: 048
  9. LASIX [Concomitant]
     Route: 048
  10. AMITRIPTLINE HYDROCHLORIDE TAB [Concomitant]
     Route: 048
  11. KEPPRA [Concomitant]

REACTIONS (2)
  - GRAND MAL CONVULSION [None]
  - MYASTHENIA GRAVIS [None]
